FAERS Safety Report 24448517 (Version 1)
Quarter: 2024Q4

REPORT INFORMATION
  Report Type: Other
  Country: GB (occurrence: GB)
  Receive Date: 20241017
  Receipt Date: 20241017
  Transmission Date: 20250114
  Serious: Yes (Death, Life-Threatening, Hospitalization, Other)
  Sender: ASPEN
  Company Number: None

PATIENT

DRUGS (1)
  1. DEXAMETHASONE [Suspect]
     Active Substance: DEXAMETHASONE
     Indication: Central nervous system lesion
     Dosage: 4MG QDS
     Route: 065

REACTIONS (4)
  - Drug monitoring procedure not performed [Fatal]
  - Off label use [Fatal]
  - Pneumocystis jirovecii pneumonia [Fatal]
  - Diabetic ketoacidosis [Not Recovered/Not Resolved]

NARRATIVE: CASE EVENT DATE: 20240821
